FAERS Safety Report 5817273-0 (Version None)
Quarter: 2008Q3

REPORT INFORMATION
  Report Type: 
  Country: None (occurrence: None)
  Receive Date: 20080722
  Receipt Date: 20080722
  Transmission Date: 20090109
  Serious: Yes (Life-Threatening, Other)
  Sender: FDA-Public Use
  Company Number: A0735828A

PATIENT
  Age: 50 Year
  Sex: Male

DRUGS (3)
  1. VERAMYST [Suspect]
     Route: 045
     Dates: start: 20080626
  2. TORADOL [Suspect]
     Indication: DRUG USE FOR UNKNOWN INDICATION
     Dosage: 60MG AS REQUIRED
     Route: 030
     Dates: start: 20070716
  3. TALWIN NX [Concomitant]

REACTIONS (4)
  - ANAPHYLACTIC REACTION [None]
  - BLOOD PRESSURE DECREASED [None]
  - PRURITUS GENERALISED [None]
  - THROAT TIGHTNESS [None]
